FAERS Safety Report 4455950-7 (Version None)
Quarter: 2004Q3

REPORT INFORMATION
  Report Type: 
  Country: None (occurrence: None)
  Receive Date: 20040922
  Receipt Date: 20040730
  Transmission Date: 20050211
  Serious: Yes (Hospitalization)
  Sender: FDA-Public Use
  Company Number: US-GLAXOSMITHKLINE-A0520390A

PATIENT
  Age: 84 Year
  Sex: Male
  Weight: 67.7 kg

DRUGS (7)
  1. LANOXIN [Suspect]
     Route: 065
  2. ASPIRIN [Concomitant]
  3. ZOCOR [Concomitant]
  4. COREG [Concomitant]
  5. PAXIL [Concomitant]
  6. MULTI-VITAMIN [Concomitant]
  7. DOXYCYCLINE [Concomitant]

REACTIONS (3)
  - CARDIOACTIVE DRUG LEVEL DECREASED [None]
  - MYOCARDIAL INFARCTION [None]
  - PHARMACEUTICAL PRODUCT COMPLAINT [None]
